FAERS Safety Report 23729508 (Version 1)
Quarter: 2024Q2

REPORT INFORMATION
  Report Type: Spontaneous
  Country: US (occurrence: US)
  Receive Date: 20240410
  Receipt Date: 20240410
  Transmission Date: 20240716
  Serious: No
  Sender: FDA-Public Use
  Company Number: US-Marksans Pharma Limited-2155442

PATIENT
  Sex: Female

DRUGS (1)
  1. EXTRA STRENGTH GAS RELIEF [Suspect]
     Active Substance: DIMETHICONE
     Indication: Product used for unknown indication
     Route: 048

REACTIONS (1)
  - Diarrhoea [Recovered/Resolved]
